FAERS Safety Report 7002523-8 (Version None)
Quarter: 2010Q3

REPORT INFORMATION
  Report Type: 
  Country: None (occurrence: None)
  Receive Date: 20100920
  Receipt Date: 20100319
  Transmission Date: 20110219
  Serious: No
  Sender: FDA-Public Use
  Company Number: US-ASTRAZENECA-2010SE12256

PATIENT
  Age: 40 Year
  Sex: Female

DRUGS (4)
  1. SEROQUEL [Suspect]
     Route: 048
  2. WELLBUTRIN [Concomitant]
  3. VALIUM [Concomitant]
  4. UNSPECIFIED ANTI-ANXIETY [Concomitant]

REACTIONS (1)
  - IMPAIRED GASTRIC EMPTYING [None]
